FAERS Safety Report 11630527 (Version 2)
Quarter: 2016Q4

REPORT INFORMATION
  Report Type: Spontaneous
  Country: US (occurrence: US)
  Receive Date: 20151014
  Receipt Date: 20161004
  Transmission Date: 20170206
  Serious: No
  Sender: FDA-Public Use
  Company Number: US-UNICHEM LABORATORIES LIMITED-UCM201508-000566

PATIENT
  Sex: Female
  Weight: 134.26 kg

DRUGS (26)
  1. FLUTICASONE-NASAL SPRAY [Concomitant]
     Indication: CHRONIC SINUSITIS
  2. SINGULAIR [Concomitant]
     Active Substance: MONTELUKAST SODIUM
     Indication: CHRONIC OBSTRUCTIVE PULMONARY DISEASE
  3. FLUOXETINE [Concomitant]
     Active Substance: FLUOXETINE HYDROCHLORIDE
     Indication: BIPOLAR DISORDER
  4. FLUOXETINE [Concomitant]
     Active Substance: FLUOXETINE HYDROCHLORIDE
     Indication: BIPOLAR I DISORDER
  5. SEROQUEL [Concomitant]
     Active Substance: QUETIAPINE FUMARATE
     Indication: POST-TRAUMATIC STRESS DISORDER
  6. LORATADINE. [Concomitant]
     Active Substance: LORATADINE
     Indication: HYPERSENSITIVITY
  7. ADVAIR HFA [Concomitant]
     Active Substance: FLUTICASONE PROPIONATE\SALMETEROL XINAFOATE
     Indication: CHRONIC OBSTRUCTIVE PULMONARY DISEASE
  8. MORPHINE SULPHATE SR [Concomitant]
     Indication: SPINAL COLUMN STENOSIS
  9. METOPROLOL TARTRATE. [Concomitant]
     Active Substance: METOPROLOL TARTRATE
     Indication: HYPERTENSION
  10. ALBUTEROL SULPHATE [Concomitant]
     Active Substance: ALBUTEROL
     Indication: EMPHYSEMA
  11. ASPIRIN. [Suspect]
     Active Substance: ASPIRIN
  12. SINGULAIR [Concomitant]
     Active Substance: MONTELUKAST SODIUM
     Indication: EMPHYSEMA
  13. ADVAIR HFA [Concomitant]
     Active Substance: FLUTICASONE PROPIONATE\SALMETEROL XINAFOATE
     Indication: EMPHYSEMA
  14. MORPHINE SULPHATE ER [Concomitant]
     Indication: SPINAL COLUMN STENOSIS
  15. HYDROCHLOROTHIAZIDE. [Suspect]
     Active Substance: HYDROCHLOROTHIAZIDE
     Indication: BLOOD PRESSURE MEASUREMENT
     Route: 046
     Dates: start: 201302
  16. FLUOXETINE [Concomitant]
     Active Substance: FLUOXETINE HYDROCHLORIDE
     Indication: POST-TRAUMATIC STRESS DISORDER
  17. SPIRIVA INHALER [Concomitant]
     Indication: EMPHYSEMA
  18. MORPHINE SULPHATE ER [Concomitant]
     Indication: INTERVERTEBRAL DISC DEGENERATION
  19. MORPHINE SULPHATE SR [Concomitant]
     Indication: INTERVERTEBRAL DISC PROTRUSION
  20. ALBUTEROL SULPHATE [Concomitant]
     Active Substance: ALBUTEROL
     Indication: CHRONIC OBSTRUCTIVE PULMONARY DISEASE
  21. SPIRIVA INHALER [Concomitant]
     Indication: CHRONIC OBSTRUCTIVE PULMONARY DISEASE
  22. SEROQUEL [Concomitant]
     Active Substance: QUETIAPINE FUMARATE
     Indication: BIPOLAR DISORDER
  23. MORPHINE SULPHATE ER [Concomitant]
     Indication: INTERVERTEBRAL DISC PROTRUSION
  24. MORPHINE SULPHATE SR [Concomitant]
     Indication: INTERVERTEBRAL DISC DEGENERATION
  25. DIAZEPAM. [Concomitant]
     Active Substance: DIAZEPAM
     Indication: POST-TRAUMATIC STRESS DISORDER
  26. FIORICET [Concomitant]
     Active Substance: ACETAMINOPHEN\BUTALBITAL\CAFFEINE
     Indication: MIGRAINE

REACTIONS (3)
  - Haemorrhage [Unknown]
  - Scratch [Not Recovered/Not Resolved]
  - Injury [Unknown]
